FAERS Safety Report 16677285 (Version 1)
Quarter: 2019Q3

REPORT INFORMATION
  Report Type: Spontaneous
  Country: US (occurrence: US)
  Receive Date: 20190807
  Receipt Date: 20190807
  Transmission Date: 20191004
  Serious: No
  Sender: FDA-Public Use
  Company Number: US-009507513-1907USA004968

PATIENT
  Sex: Female

DRUGS (1)
  1. ASMANEX [Suspect]
     Active Substance: MOMETASONE FUROATE
     Indication: ASTHMA
     Dosage: 1 PUFF ORALLY TWICE DAILY
     Route: 055

REACTIONS (4)
  - Poor quality device used [Unknown]
  - Expired product administered [Unknown]
  - Nasopharyngitis [Recovered/Resolved]
  - Product quality issue [Unknown]
